FAERS Safety Report 5403990-3 (Version None)
Quarter: 2007Q3

REPORT INFORMATION
  Report Type: 
  Country: None (occurrence: None)
  Receive Date: 20070802
  Receipt Date: 20070725
  Transmission Date: 20080115
  Serious: Yes (Death, Life-Threatening, Hospitalization)
  Sender: FDA-Public Use
  Company Number: B0480612A

PATIENT
  Age: 93 Year
  Sex: Female

DRUGS (6)
  1. LAMICTAL [Suspect]
     Indication: CONVULSION
     Dosage: 25MG THREE TIMES PER DAY
     Route: 048
     Dates: start: 20070601, end: 20070628
  2. LEVOTHYROXINE SODIUM [Concomitant]
     Dosage: 62.5MCG PER DAY
     Route: 065
  3. SERESTA [Concomitant]
     Dosage: 10MG AT NIGHT
     Route: 065
  4. INIPOMP [Concomitant]
     Dosage: 20MG AT NIGHT
     Route: 065
  5. MINOCIN [Concomitant]
     Dosage: 100MG IN THE MORNING
     Route: 065
  6. KARDEGIC [Concomitant]
     Dosage: 75MG IN THE MORNING
     Route: 065

REACTIONS (13)
  - BLOOD CREATININE INCREASED [None]
  - BLOOD FIBRINOGEN DECREASED [None]
  - BLOOD UREA INCREASED [None]
  - DISSEMINATED INTRAVASCULAR COAGULATION [None]
  - FIBRIN D DIMER INCREASED [None]
  - GENERAL PHYSICAL HEALTH DETERIORATION [None]
  - HAEMATOMA [None]
  - LUNG INFECTION [None]
  - LYMPHOMA [None]
  - OEDEMA PERIPHERAL [None]
  - RENAL FAILURE [None]
  - SUBDURAL HAEMATOMA [None]
  - THROMBOCYTOPENIA [None]
